FAERS Safety Report 23535980 (Version 1)
Quarter: 2024Q1

REPORT INFORMATION
  Report Type: Report from Study
  Country: US (occurrence: US)
  Receive Date: 20240219
  Receipt Date: 20240219
  Transmission Date: 20240410
  Serious: Yes (Other)
  Sender: FDA-Public Use
  Company Number: US-Merck Healthcare KGaA-2024005783

PATIENT
  Age: 52 Year
  Sex: Male

DRUGS (1)
  1. REBIF [Suspect]
     Active Substance: INTERFERON BETA-1A
     Indication: Multiple sclerosis
     Route: 058
     Dates: start: 20231116, end: 202401

REACTIONS (5)
  - Arthralgia [Unknown]
  - Myalgia [Recovered/Resolved]
  - Hepatic enzyme increased [Unknown]
  - Intervertebral disc protrusion [Unknown]
  - Nerve compression [Unknown]
